FAERS Safety Report 12703711 (Version 2)
Quarter: 2016Q3

REPORT INFORMATION
  Report Type: Spontaneous
  Country: US (occurrence: US)
  Receive Date: 20160831
  Receipt Date: 20160912
  Transmission Date: 20161109
  Serious: Yes (Hospitalization)
  Sender: FDA-Public Use
  Company Number: US-TORRENT-00001268

PATIENT
  Age: 63 Year
  Sex: Male
  Weight: 60 kg

DRUGS (3)
  1. LAMOTRIGINE TABLET [Suspect]
     Active Substance: LAMOTRIGINE
     Indication: SEIZURE
     Dosage: 1 TABLET DAILY FOR THE FIRST WEEK AND 2 TABLETS DAILY
     Route: 048
     Dates: start: 20160818
  2. COENZYME Q10 [Concomitant]
     Active Substance: UBIDECARENONE
     Indication: PRODUCT USED FOR UNKNOWN INDICATION
  3. VITAMIN B [Concomitant]
     Active Substance: VITAMIN B
     Indication: PRODUCT USED FOR UNKNOWN INDICATION

REACTIONS (9)
  - Panic attack [Unknown]
  - Nasopharyngitis [Recovering/Resolving]
  - Generalised tonic-clonic seizure [Unknown]
  - Memory impairment [Recovered/Resolved]
  - Disorientation [Not Recovered/Not Resolved]
  - Treatment noncompliance [Unknown]
  - Visual impairment [Not Recovered/Not Resolved]
  - Dysgeusia [Not Recovered/Not Resolved]
  - Confusional state [Not Recovered/Not Resolved]
